FAERS Safety Report 8834274 (Version 1)
Quarter: 2012Q4

REPORT INFORMATION
  Report Type: 
  Country: US (occurrence: US)
  Receive Date: 20121010
  Receipt Date: 20121010
  Transmission Date: 20130627
  Serious: No
  Sender: FDA-Public Use
  Company Number: US-ASTRAZENECA-2012SE75268

PATIENT
  Age: 71 Year
  Sex: Female

DRUGS (11)
  1. SEROQUEL [Suspect]
     Route: 048
  2. CRESTOR [Suspect]
     Route: 048
  3. ALPRAZOLAM [Concomitant]
  4. ASPIRIN [Concomitant]
  5. CARDURA [Concomitant]
  6. LASIX [Concomitant]
  7. MAGNESIUM OXIDE [Concomitant]
  8. RANEXA [Concomitant]
  9. TENORMIN [Concomitant]
  10. VITAMIN D3 [Concomitant]
  11. CO Q-10 [Concomitant]

REACTIONS (2)
  - Abnormal behaviour [Unknown]
  - Off label use [Unknown]
